FAERS Safety Report 7214957-7 (Version None)
Quarter: 2011Q1

REPORT INFORMATION
  Report Type: 
  Country: None (occurrence: None)
  Receive Date: 20110107
  Receipt Date: 20100729
  Transmission Date: 20110831
  Serious: No
  Sender: FDA-Public Use
  Company Number: A0863356A

PATIENT
  Sex: Male

DRUGS (8)
  1. BENICAR [Concomitant]
  2. TOPROL-XL [Concomitant]
  3. LOVAZA [Suspect]
     Dosage: 4CAP PER DAY
     Route: 048
  4. VYTORIN [Concomitant]
  5. BYETTA [Concomitant]
  6. ALLERGY MEDICATION [Concomitant]
  7. HCT [Concomitant]
  8. ASPIRIN [Concomitant]

REACTIONS (3)
  - NAUSEA [None]
  - DECREASED APPETITE [None]
  - PRODUCT QUALITY ISSUE [None]
